FAERS Safety Report 6174245-7 (Version None)
Quarter: 2009Q2

REPORT INFORMATION
  Report Type: 
  Country: None (occurrence: None)
  Receive Date: 20090430
  Receipt Date: 20080314
  Transmission Date: 20091009
  Serious: No
  Sender: FDA-Public Use
  Company Number: US-ASTRAZENECA-2008UW05289

PATIENT
  Age: 59 Year
  Sex: Female

DRUGS (14)
  1. NEXIUM [Suspect]
     Indication: DYSPEPSIA
     Route: 048
     Dates: start: 20050101
  2. SYNTHROID [Concomitant]
  3. AZILECT [Concomitant]
  4. CINAMET [Concomitant]
  5. MIRAPEX [Concomitant]
  6. BACLOFEN [Concomitant]
  7. ADVAIR HFA [Concomitant]
  8. SINGULAIR [Concomitant]
  9. RHINOCORT [Concomitant]
  10. BYETTA [Concomitant]
  11. ENALAPRIL MALEATE [Concomitant]
  12. GABAPENTIN [Concomitant]
  13. CLONAZEPAM [Concomitant]
  14. RESTASIS [Concomitant]

REACTIONS (3)
  - DRUG INEFFECTIVE [None]
  - DYSPNOEA [None]
  - THROAT IRRITATION [None]
